FAERS Safety Report 9170562 (Version 1)
Quarter: 2013Q1

REPORT INFORMATION
  Report Type: Spontaneous
  Country: US (occurrence: None)
  Receive Date: 20130308
  Receipt Date: 20130308
  Transmission Date: 20140127
  Serious: Yes (Other)
  Sender: FDA-Public Use
  Company Number: 001484834A

PATIENT
  Age: 27 Year
  Sex: Female

DRUGS (1)
  1. PROACTIV REFINING MASK [Suspect]
     Dosage: ONCE DAILY DERMAL
     Dates: start: 20130119, end: 20130121

REACTIONS (4)
  - Swelling face [None]
  - Erythema [None]
  - Pruritus [None]
  - Urticaria [None]
